FAERS Safety Report 5134652-8 (Version None)
Quarter: 2006Q4

REPORT INFORMATION
  Report Type: 
  Country: None (occurrence: None)
  Receive Date: 20061025
  Receipt Date: 20061019
  Transmission Date: 20070319
  Serious: Yes (Hospitalization)
  Sender: FDA-Public Use
  Company Number: FR-GLAXOSMITHKLINE-B0442865A

PATIENT
  Age: 6 Day
  Sex: Female

DRUGS (3)
  1. LAMICTAL [Suspect]
     Indication: EPILEPSY
  2. RIVOTRIL [Suspect]
     Indication: EPILEPSY
  3. EPITOMAX [Suspect]
     Indication: EPILEPSY

REACTIONS (6)
  - ATRIAL SEPTAL DEFECT [None]
  - ATROPHY [None]
  - CARDIAC DISORDER [None]
  - DRUG EXPOSURE DURING PREGNANCY [None]
  - VENTRICULAR SEPTAL DEFECT [None]
  - WEIGHT GAIN POOR [None]
